FAERS Safety Report 25957910 (Version 1)
Quarter: 2025Q4

REPORT INFORMATION
  Report Type: Spontaneous
  Country: EU (occurrence: EU)
  Receive Date: 20251024
  Receipt Date: 20251024
  Transmission Date: 20260117
  Serious: Yes (Other)
  Sender: TEVA
  Company Number: None

PATIENT
  Age: 42 Year
  Sex: Female

DRUGS (1)
  1. PREDNISOLONE [Suspect]
     Active Substance: PREDNISOLONE
     Indication: Periarthritis
     Dosage: STRENGTH: UNKNOWN. ?DOSAGE: 8 INJECTIONS IN TOTAL IN AN UNKNOWN INTERVAL. DOSAGE IN TOTAL FROM 12...
     Route: 065
     Dates: start: 20200714, end: 20200902

REACTIONS (1)
  - Adrenal insufficiency [Recovered/Resolved]

NARRATIVE: CASE EVENT DATE: 20200901
